FAERS Safety Report 9550848 (Version 1)
Quarter: 2013Q3

REPORT INFORMATION
  Report Type: Spontaneous
  Country: US (occurrence: US)
  Receive Date: 20130924
  Receipt Date: 20130924
  Transmission Date: 20140515
  Serious: No
  Sender: FDA-Public Use
  Company Number: US-SANOFI-AVENTIS-2013SA059170

PATIENT
  Age: 45 Year
  Sex: Female

DRUGS (5)
  1. AUBAGIO [Suspect]
     Indication: MULTIPLE SCLEROSIS
     Route: 048
     Dates: start: 20130507
  2. PREMARIN TABLET [Concomitant]
  3. TOPIRAMATE [Concomitant]
  4. WELLBUTRIN - SLOW RELEASE [Concomitant]
  5. DAILY MULTIVITAMIN [Concomitant]

REACTIONS (2)
  - Influenza like illness [Unknown]
  - Headache [Unknown]
